FAERS Safety Report 8491916-8 (Version None)
Quarter: 2012Q3

REPORT INFORMATION
  Report Type: 
  Country: None (occurrence: None)
  Receive Date: 20120706
  Receipt Date: 20120131
  Transmission Date: 20120928
  Serious: No
  Sender: FDA-Public Use
  Company Number: US-GLAXOSMITHKLINE-A0964035A

PATIENT
  Age: 60 Year
  Sex: Female

DRUGS (4)
  1. XOPENEX [Concomitant]
  2. PREDNISONE TAB [Suspect]
     Indication: LUNG INFECTION
     Route: 065
     Dates: start: 20111130
  3. HERBAL SUPPLEMENTS [Concomitant]
  4. FLOVENT [Suspect]
     Indication: CHRONIC OBSTRUCTIVE PULMONARY DISEASE
     Dosage: 1PUFF PER DAY
     Route: 055
     Dates: start: 20111219

REACTIONS (4)
  - INSOMNIA [None]
  - DYSPHONIA [None]
  - ANXIETY [None]
  - DISCOMFORT [None]
